FAERS Safety Report 19440222 (Version 1)
Quarter: 2021Q2

REPORT INFORMATION
  Report Type: Report from Study
  Country: BE (occurrence: BE)
  Receive Date: 20210621
  Receipt Date: 20210621
  Transmission Date: 20210717
  Serious: Yes (Other)
  Sender: FDA-Public Use
  Company Number: BE-AUROBINDO-AUR-APL-2021-025386

PATIENT

DRUGS (5)
  1. TRAMADOL. [Interacting]
     Active Substance: TRAMADOL
     Indication: PRODUCT USED FOR UNKNOWN INDICATION
     Dosage: UNK
     Route: 065
  2. METHYLPREDNISOLONE. [Interacting]
     Active Substance: METHYLPREDNISOLONE
     Indication: PRODUCT USED FOR UNKNOWN INDICATION
     Dosage: UNK
     Route: 065
  3. SUNITINIB [Suspect]
     Active Substance: SUNITINIB
     Indication: PRODUCT USED FOR UNKNOWN INDICATION
  4. LOPERAMIDE [Suspect]
     Active Substance: LOPERAMIDE
     Indication: PRODUCT USED FOR UNKNOWN INDICATION
     Dosage: UNK
     Route: 065
  5. DOMPERIDONE [Interacting]
     Active Substance: DOMPERIDONE
     Indication: PRODUCT USED FOR UNKNOWN INDICATION
     Dosage: UNK
     Route: 065

REACTIONS (2)
  - Electrocardiogram QT prolonged [Unknown]
  - Drug interaction [Unknown]
